FAERS Safety Report 4380017-6 (Version None)
Quarter: 2004Q2

REPORT INFORMATION
  Report Type: 
  Country: None (occurrence: None)
  Receive Date: 20040614
  Receipt Date: 20040528
  Transmission Date: 20050107
  Serious: No
  Sender: FDA-Public Use
  Company Number: 04P-087-0263490-00

PATIENT
  Age: 72 Year
  Sex: 0

DRUGS (2)
  1. VASOLAN INJECTION (ISOPTIN) (VERAPAMIL) (VERAPAMIL) [Suspect]
     Indication: ATRIAL FIBRILLATION
     Dosage: INTRAVENOUS
     Route: 042
  2. DISOPYRAMIDE [Suspect]
     Indication: ATRIAL FIBRILLATION
     Dosage: INTRAVENOUS
     Route: 042

REACTIONS (3)
  - LOW CARDIAC OUTPUT SYNDROME [None]
  - SHOCK [None]
  - TORSADE DE POINTES [None]
